FAERS Safety Report 20216525 (Version 1)
Quarter: 2021Q4

REPORT INFORMATION
  Report Type: Spontaneous
  Country: US (occurrence: None)
  Receive Date: 20211221
  Receipt Date: 20211221
  Transmission Date: 20220303
  Serious: Yes (Hospitalization)
  Sender: FDA-Public Use
  Company Number: None

PATIENT
  Age: 60 Year
  Sex: Male
  Weight: 88 kg

DRUGS (1)
  1. DAPTOMYCIN [Suspect]
     Active Substance: DAPTOMYCIN
     Dosage: FREQUENCY : DAILY;?
     Route: 042
     Dates: start: 20211012, end: 20211103

REACTIONS (9)
  - Cellulitis [None]
  - Staphylococcal abscess [None]
  - Osteomyelitis [None]
  - Malaise [None]
  - Asthenia [None]
  - Headache [None]
  - Hyperhidrosis [None]
  - Eosinophilia [None]
  - Pneumonitis [None]

NARRATIVE: CASE EVENT DATE: 20211102
